FAERS Safety Report 7586624-1 (Version None)
Quarter: 2011Q3

REPORT INFORMATION
  Report Type: 
  Country: None (occurrence: None)
  Receive Date: 20110701
  Receipt Date: 20110616
  Transmission Date: 20111222
  Serious: Yes (Hospitalization, Other)
  Sender: FDA-Public Use
  Company Number: US-BAYER-201026855NA

PATIENT
  Age: 29 Year
  Sex: Female
  Weight: 86.621 kg

DRUGS (15)
  1. DEXAMETHASONE [Concomitant]
     Indication: ADRENAL DISORDER
     Dosage: 0.75 MG, QD
     Dates: start: 20080429
  2. DIPHENOXYLATE HCL + ATROPINE SULFATE [Concomitant]
  3. DICYCLOMINE [Concomitant]
  4. YAZ [Suspect]
     Indication: CONTRACEPTION
     Dosage: UNK UNK, UNK
     Route: 048
     Dates: start: 20080301, end: 20080601
  5. YAZ [Suspect]
     Dosage: UNK
     Dates: start: 20050110
  6. NAPROXEN [Concomitant]
     Indication: ARTHRITIS
  7. DOXYCYCLINE [Concomitant]
     Indication: ABDOMINAL PAIN UPPER
     Dosage: 20 MG, UNK
     Dates: start: 20080530
  8. DOXYCYCLINE [Concomitant]
     Indication: FREQUENT BOWEL MOVEMENTS
  9. FLUDROCORTISONE ACETATE [Concomitant]
     Indication: ADRENAL DISORDER
     Dosage: 0.01 MG, QD
     Dates: start: 20080429
  10. YASMIN [Suspect]
     Indication: PRODUCT USED FOR UNKNOWN INDICATION
     Dosage: UNK UNK, UNK
     Route: 048
     Dates: start: 20050110
  11. DOXYCYCLINE [Concomitant]
     Indication: RESPIRATORY TRACT INFECTION
  12. PROMETHAZINE [Concomitant]
     Indication: MULTIPLE ALLERGIES
     Dosage: UNK
     Dates: start: 20080528
  13. TORADOL [Concomitant]
  14. PROMETHEGAN [Concomitant]
  15. METRONIDAZOLE [Concomitant]

REACTIONS (4)
  - CHOLECYSTITIS CHRONIC [None]
  - GALLBLADDER DISORDER [None]
  - ABDOMINAL PAIN UPPER [None]
  - PAIN [None]
